FAERS Safety Report 5327933-6 (Version None)
Quarter: 2007Q2

REPORT INFORMATION
  Report Type: 
  Country: None (occurrence: None)
  Receive Date: 20070517
  Receipt Date: 20070507
  Transmission Date: 20071010
  Serious: Yes (Hospitalization, Other)
  Sender: FDA-Public Use
  Company Number: US-PFIZER INC-2006131630

PATIENT
  Sex: Female

DRUGS (2)
  1. BEXTRA [Suspect]
     Indication: INFLAMMATION
     Dates: start: 20041002, end: 20050106
  2. BEXTRA [Suspect]
     Indication: ARTHRALGIA

REACTIONS (3)
  - MULTIPLE SCLEROSIS [None]
  - MYOCARDIAL INFARCTION [None]
  - PULMONARY EMBOLISM [None]
